FAERS Safety Report 9845008 (Version 1)
Quarter: 2014Q1

REPORT INFORMATION
  Report Type: Spontaneous
  Country: CA (occurrence: CA)
  Receive Date: 20140127
  Receipt Date: 20140127
  Transmission Date: 20141002
  Serious: Yes (Other)
  Sender: FDA-Public Use
  Company Number: CA-MERCK-1401CAN010576

PATIENT
  Age: 74 Year
  Sex: Female

DRUGS (8)
  1. MIRTAZAPINE [Suspect]
     Dosage: 30 MG, 1 EVERY 1 DAY
     Route: 065
  2. DIMENHYDRINATE [Suspect]
     Dosage: 50 MG, 1 EVERY 4 HOURS
     Route: 065
  3. FUROSEMIDE [Suspect]
     Dosage: 40 MG, 1 EVERY 1 DAY
     Route: 065
  4. MORPHINE SULFATE [Suspect]
     Dosage: 30 MG, 1 EVERY 4 HOURS
     Route: 065
  5. BISACODYL [Concomitant]
     Route: 065
  6. DOCUSATE SODIUM [Concomitant]
     Route: 065
  7. LACTULOSE [Concomitant]
     Route: 065
  8. SODIUM PHOSPHATE, DIBASIC [Concomitant]
     Route: 065

REACTIONS (3)
  - Colonic pseudo-obstruction [Unknown]
  - Condition aggravated [Unknown]
  - Delirium [Unknown]
